FAERS Safety Report 9218984 (Version 2)
Quarter: 2014Q3

REPORT INFORMATION
  Report Type: Spontaneous
  Country: FR (occurrence: FR)
  Receive Date: 20130409
  Receipt Date: 20140711
  Transmission Date: 20150326
  Serious: Yes (Life-Threatening, Hospitalization, Other)
  Sender: FDA-Public Use
  Company Number: FR-PFIZER INC-2013110542

PATIENT
  Age: 6 Year
  Sex: Female

DRUGS (3)
  1. CORDARONE [Suspect]
     Active Substance: AMIODARONE HYDROCHLORIDE
     Indication: TACHYCARDIA
     Dosage: 150 MG, DAILY
     Route: 048
     Dates: start: 2008, end: 20130213
  2. DOLIPRANE [Concomitant]
     Active Substance: ACETAMINOPHEN
     Indication: PYREXIA
     Dosage: UNK
     Dates: start: 20130211, end: 20130212
  3. HUMEX(CARBOCYSTEINE) [Concomitant]
     Active Substance: CARBOCYSTEINE
     Indication: RHINITIS
     Dosage: UNK
     Dates: start: 20120211, end: 20130211

REACTIONS (11)
  - Overdose [Unknown]
  - Neuromyopathy [Recovered/Resolved with Sequelae]
  - Epilepsy [Unknown]
  - Hepatic steatosis [Recovered/Resolved]
  - Hepatocellular injury [Unknown]
  - Acidosis [Unknown]
  - Blood glucose increased [Unknown]
  - Renal haematoma [Unknown]
  - Off label use [Unknown]
  - Hepatic failure [Recovered/Resolved]
  - Renal failure acute [Unknown]

NARRATIVE: CASE EVENT DATE: 20130212
